FAERS Safety Report 5324796-X (Version None)
Quarter: 2007Q2

REPORT INFORMATION
  Report Type: 
  Country: None (occurrence: None)
  Receive Date: 20070515
  Receipt Date: 20070507
  Transmission Date: 20071010
  Serious: Yes (Other)
  Sender: FDA-Public Use
  Company Number: PHBS2007AR07921

PATIENT
  Age: 76 Year
  Sex: Female

DRUGS (1)
  1. TEGRETOL [Suspect]
     Indication: ANALGESIC THERAPY
     Dosage: 800 MG, QD
     Route: 065
     Dates: start: 20070405

REACTIONS (3)
  - BLOOD PRESSURE DECREASED [None]
  - LOSS OF CONSCIOUSNESS [None]
  - SOMNOLENCE [None]
